FAERS Safety Report 7708889-5 (Version None)
Quarter: 2011Q3

REPORT INFORMATION
  Report Type: 
  Country: None (occurrence: None)
  Receive Date: 20110825
  Receipt Date: 20110816
  Transmission Date: 20111222
  Serious: Yes (Hospitalization)
  Sender: FDA-Public Use
  Company Number: SE-SANOFI-AVENTIS-2011SA029993

PATIENT
  Age: 86 Year
  Sex: Male
  Weight: 86 kg

DRUGS (8)
  1. FUROSEMIDE [Concomitant]
  2. IMDUR [Concomitant]
  3. DRONEDARONE HCL [Suspect]
     Indication: ATRIAL FIBRILLATION
     Route: 048
     Dates: start: 20110311, end: 20110426
  4. SPIRONOLACTONE [Concomitant]
  5. RAMIPRIL [Concomitant]
  6. METOPROLOL [Concomitant]
  7. WARFARIN SODIUM [Concomitant]
     Dosage: 37.5 MG WEEKLY
     Route: 065
  8. INSULIN [Concomitant]

REACTIONS (3)
  - DIARRHOEA [None]
  - PULMONARY EMBOLISM [None]
  - PNEUMONIA [None]
